FAERS Safety Report 9676439 (Version 3)
Quarter: 2014Q3

REPORT INFORMATION
  Report Type: Report from Study
  Country: DE (occurrence: DE)
  Receive Date: 20131107
  Receipt Date: 20140805
  Transmission Date: 20150326
  Serious: Yes (Hospitalization)
  Sender: FDA-Public Use
  Company Number: PHHO2013DE013826

PATIENT

DRUGS (6)
  1. PHENPROCOUMON [Suspect]
     Active Substance: PHENPROCOUMON
  2. ACETYLSALICYLIC ACID [Suspect]
     Active Substance: ASPIRIN
  3. METOPROLOL [Concomitant]
     Active Substance: METOPROLOL
     Indication: CARDIAC FAILURE CHRONIC
     Dosage: 100 MG, UNK
     Dates: start: 19991014, end: 20131015
  4. METOPROLOL [Concomitant]
     Active Substance: METOPROLOL
     Dosage: 47.5 MG, (1/2-0-1/2)
     Dates: start: 20131016
  5. LCZ696 [Suspect]
     Active Substance: INVESTIGATIONAL PRODUCT
     Indication: CARDIAC FAILURE CHRONIC
     Dosage: 200 MG, BID
     Route: 048
     Dates: start: 20120508, end: 20131021
  6. LCZ696 [Suspect]
     Active Substance: INVESTIGATIONAL PRODUCT
     Dosage: 200 MG, BID
     Route: 048
     Dates: start: 20131101

REACTIONS (1)
  - Anaemia [Recovered/Resolved]

NARRATIVE: CASE EVENT DATE: 20131017
